FAERS Safety Report 14733060 (Version 1)
Quarter: 2018Q2

REPORT INFORMATION
  Report Type: Spontaneous
  Country: FR (occurrence: FR)
  Receive Date: 20180409
  Receipt Date: 20180409
  Transmission Date: 20180711
  Serious: Yes (Other)
  Sender: FDA-Public Use
  Company Number: FR-MERCK KGAA-2045346

PATIENT
  Age: 37 Year
  Sex: Female
  Weight: 46 kg

DRUGS (1)
  1. NOVOTHYROX [Suspect]
     Active Substance: LEVOTHYROXINE SODIUM
     Indication: HYPOTHYROIDISM
     Route: 048
     Dates: start: 2012, end: 20171014

REACTIONS (9)
  - Asthenia [Recovered/Resolved]
  - Insomnia [Recovered/Resolved]
  - Abdominal pain [Recovered/Resolved]
  - Migraine [Recovered/Resolved]
  - Alopecia [Recovered/Resolved]
  - Affect lability [Recovered/Resolved]
  - Memory impairment [Recovered/Resolved]
  - Diarrhoea [Recovered/Resolved]
  - Palpitations [Recovered/Resolved]

NARRATIVE: CASE EVENT DATE: 201706
